FAERS Safety Report 4913677-9 (Version None)
Quarter: 2006Q1

REPORT INFORMATION
  Report Type: 
  Country: None (occurrence: None)
  Receive Date: 20060210
  Receipt Date: 20060129
  Transmission Date: 20060701
  Serious: Yes (Hospitalization, Other)
  Sender: FDA-Public Use
  Company Number: 2006016037

PATIENT
  Age: 80 Year
  Sex: Male

DRUGS (3)
  1. CELEBREX [Suspect]
     Indication: SCIATICA
     Dates: start: 20060101, end: 20060128
  2. KARDEGIC (ACETYSALICYLATE LYSINE) [Concomitant]
  3. NEXIUM [Concomitant]

REACTIONS (2)
  - COMA [None]
  - EPILEPSY [None]
